FAERS Safety Report 18318033 (Version 2)
Quarter: 2020Q3

REPORT INFORMATION
  Report Type: Spontaneous
  Country: US (occurrence: US)
  Receive Date: 20200928
  Receipt Date: 20200930
  Transmission Date: 20201103
  Serious: Yes (Other)
  Sender: FDA-Public Use
  Company Number: US-PFIZER INC-2020368154

PATIENT
  Age: 52 Year
  Sex: Female
  Weight: 103.42 kg

DRUGS (2)
  1. PREGABALIN. [Suspect]
     Active Substance: PREGABALIN
     Indication: RESTLESS LEGS SYNDROME
  2. PREGABALIN. [Suspect]
     Active Substance: PREGABALIN
     Indication: FIBROMYALGIA
     Dosage: UNK
     Dates: start: 2017

REACTIONS (11)
  - Intervertebral disc protrusion [Unknown]
  - Diplopia [Unknown]
  - Drug ineffective [Unknown]
  - Feeling abnormal [Not Recovered/Not Resolved]
  - Vision blurred [Unknown]
  - Blood cholesterol increased [Unknown]
  - Pain [Unknown]
  - COVID-19 [Recovering/Resolving]
  - Sleep disorder [Unknown]
  - Malaise [Unknown]
  - Vitamin B12 deficiency [Unknown]
